FAERS Safety Report 11718875 (Version 4)
Quarter: 2016Q1

REPORT INFORMATION
  Report Type: Report from Study
  Country: JP (occurrence: JP)
  Receive Date: 20151110
  Receipt Date: 20160204
  Transmission Date: 20160525
  Serious: Yes (Death, Life-Threatening)
  Sender: FDA-Public Use
  Company Number: JP-PFIZER INC-2014325655

PATIENT
  Age: 75 Year
  Sex: Male
  Weight: 42 kg

DRUGS (14)
  1. BFLUID [Concomitant]
     Active Substance: AMINO ACIDS\DEXTROSE\ELECTROLYTES NOS\VITAMINS
     Dosage: 500 ML, 2X/DAY
     Route: 041
     Dates: start: 20140508, end: 20140802
  2. SPIRONOLACTONE. [Concomitant]
     Active Substance: SPIRONOLACTONE
     Dosage: 25 MG, 1X/DAY
     Route: 048
     Dates: start: 20140528, end: 20140626
  3. DIART [Concomitant]
     Active Substance: AZOSEMIDE
     Dosage: 30 MG, 1X/DAY
     Route: 048
     Dates: start: 20140528, end: 20140716
  4. AMLODIPINE [Concomitant]
     Active Substance: AMLODIPINE BESYLATE
     Dosage: 10 MG, 1X/DAY
     Route: 048
     Dates: start: 20140502
  5. TRAMCET [Concomitant]
     Active Substance: ACETAMINOPHEN\TRAMADOL
     Dosage: 1 DF, 4X/DAY
     Route: 048
     Dates: start: 20140507
  6. FENTOS [Concomitant]
     Active Substance: FENTANYL
     Dosage: 4 MG, 1X/DAY
     Route: 062
     Dates: start: 20140430
  7. AVAPRO [Concomitant]
     Active Substance: IRBESARTAN
     Dosage: 100 MG, 1X/DAY
     Route: 048
     Dates: start: 20140603, end: 20140612
  8. XALKORI [Suspect]
     Active Substance: CRIZOTINIB
     Indication: NON-SMALL CELL LUNG CANCER
     Dosage: 250 MG, 2X/DAY
     Route: 048
     Dates: start: 20140606, end: 20140611
  9. DENOTAS CHEWABLE [Concomitant]
     Active Substance: CALCIUM CARBONATE\CHOLECALCIFEROL\MAGNESIUM CARBONATE
     Dosage: 1 DF (TABLET), 2X/DAY
     Route: 048
     Dates: start: 20140521
  10. AMITIZA [Concomitant]
     Active Substance: LUBIPROSTONE
     Dosage: 24 ?G, 2X/DAY
     Route: 048
     Dates: start: 20140519
  11. MAGMITT [Concomitant]
     Active Substance: MAGNESIUM OXIDE
     Dosage: 660 MG, 3X/DAY
     Route: 048
     Dates: start: 20140507
  12. CYMBALTA [Concomitant]
     Active Substance: DULOXETINE HYDROCHLORIDE
     Dosage: 20 MG, 1X/DAY
     Route: 048
     Dates: start: 20140529, end: 20140612
  13. PRIMPERAN [Concomitant]
     Active Substance: METOCLOPRAMIDE HYDROCHLORIDE
     Dosage: 10 MG, 2X/DAY
     Dates: start: 20140508, end: 20140802
  14. XALKORI [Suspect]
     Active Substance: CRIZOTINIB
     Dosage: 200 MG, 2X/DAY
     Route: 048
     Dates: start: 20140617, end: 20141220

REACTIONS (4)
  - Electrocardiogram QT prolonged [Recovered/Resolved]
  - Sudden death [Fatal]
  - Second primary malignancy [Fatal]
  - Gastric cancer [Fatal]

NARRATIVE: CASE EVENT DATE: 20140612
